FAERS Safety Report 5705559-X (Version None)
Quarter: 2008Q2

REPORT INFORMATION
  Report Type: 
  Country: None (occurrence: None)
  Receive Date: 20080415
  Receipt Date: 20080407
  Transmission Date: 20081010
  Serious: Yes (Other)
  Sender: FDA-Public Use
  Company Number: JP-BRISTOL-MYERS SQUIBB COMPANY-14149249

PATIENT
  Age: 32 Year
  Sex: Male

DRUGS (12)
  1. ABILIFY [Suspect]
     Indication: SCHIZOPHRENIA
     Dosage: 3MG BID 19SEP07-16OCT07(28DAYS);6MG BID 17OCT07-27-NOV07(42DAYS);3MGTID 20FEB08-27FEB08(8DAYS)
     Route: 048
     Dates: start: 20071128, end: 20080219
  2. HALOPERIDOL [Concomitant]
     Route: 030
  3. FLUNITRAZEPAM [Concomitant]
     Route: 048
     Dates: start: 20070722
  4. RISPERIDONE [Concomitant]
     Dates: start: 20070822
  5. BIPERIDEN HYDROCHLORIDE TAB [Concomitant]
     Dates: start: 20070822
  6. FAMOTIDINE [Concomitant]
     Route: 048
     Dates: start: 20070822
  7. BROTIZOLAM [Concomitant]
     Route: 048
     Dates: start: 20070822, end: 20080219
  8. RIZATRIPTAN BENZOATE [Concomitant]
     Route: 048
     Dates: start: 20070822
  9. ETIZOLAM [Concomitant]
     Route: 048
     Dates: start: 20071210, end: 20080120
  10. BROMAZEPAM [Concomitant]
     Dates: start: 20080121, end: 20080219
  11. LORAZEPAM [Concomitant]
     Route: 048
     Dates: start: 20080220
  12. TRIAZOLAM (GEN) [Concomitant]
     Route: 048
     Dates: start: 20080220

REACTIONS (1)
  - CONDITION AGGRAVATED [None]
